FAERS Safety Report 6857097-9 (Version None)
Quarter: 2010Q3

REPORT INFORMATION
  Report Type: 
  Country: None (occurrence: None)
  Receive Date: 20100719
  Receipt Date: 20100713
  Transmission Date: 20110219
  Serious: Yes (Hospitalization)
  Sender: FDA-Public Use
  Company Number: B0604028A

PATIENT
  Sex: Female
  Weight: 51 kg

DRUGS (2)
  1. TYKERB [Suspect]
     Indication: BREAST CANCER
     Route: 048
     Dates: start: 20091109, end: 20091110
  2. XELODA [Concomitant]
     Dosage: 3000MG PER DAY
     Route: 048
     Dates: start: 20091109, end: 20091210

REACTIONS (2)
  - DIARRHOEA [None]
  - OVERDOSE [None]
